FAERS Safety Report 14948623 (Version 1)
Quarter: 2018Q2

REPORT INFORMATION
  Report Type: Spontaneous
  Country: US (occurrence: US)
  Receive Date: 20180529
  Receipt Date: 20180529
  Transmission Date: 20180711
  Serious: Yes (Other)
  Sender: FDA-Public Use
  Company Number: US-INDIVIOR LIMITED-INDV-111111-2018

PATIENT
  Age: 43 Year
  Sex: Female

DRUGS (2)
  1. SUBOXONE [Suspect]
     Active Substance: BUPRENORPHINE HYDROCHLORIDE\NALOXONE HYDROCHLORIDE
     Indication: ANALGESIC THERAPY
     Dosage: UNK, WEANING HERSELF OFF
     Route: 060
     Dates: start: 20180517, end: 20180522
  2. SUBOXONE [Suspect]
     Active Substance: BUPRENORPHINE HYDROCHLORIDE\NALOXONE HYDROCHLORIDE
     Indication: DRUG DEPENDENCE
     Dosage: 2 FILMS DAILY (16MG)
     Route: 060
     Dates: start: 2017

REACTIONS (5)
  - Intentional underdose [Recovered/Resolved]
  - Insomnia [Unknown]
  - Cervical spinal stenosis [Unknown]
  - Neuralgia [Unknown]
  - Depression [Unknown]

NARRATIVE: CASE EVENT DATE: 20180517
